FAERS Safety Report 10178610 (Version 1)
Quarter: 2014Q2

REPORT INFORMATION
  Report Type: Spontaneous
  Country: US (occurrence: US)
  Receive Date: 20140519
  Receipt Date: 20140519
  Transmission Date: 20141212
  Serious: Yes (Hospitalization)
  Sender: FDA-Public Use
  Company Number: US-ROCHE-1403308

PATIENT
  Age: 66 Year
  Sex: Female
  Weight: 63.56 kg

DRUGS (1)
  1. ZELBORAF [Suspect]
     Indication: PRODUCT USED FOR UNKNOWN INDICATION
     Route: 048
     Dates: start: 20140428, end: 20140501

REACTIONS (3)
  - Systemic inflammatory response syndrome [Unknown]
  - Pyrexia [Unknown]
  - Dyspnoea [Unknown]
